FAERS Safety Report 22651724 (Version 1)
Quarter: 2023Q2

REPORT INFORMATION
  Report Type: Spontaneous
  Country: US (occurrence: US)
  Receive Date: 20230628
  Receipt Date: 20230628
  Transmission Date: 20230721
  Serious: No
  Sender: FDA-Public Use
  Company Number: US-CTI BIOPHARMA-2023US03553

PATIENT

DRUGS (2)
  1. VONJO [Suspect]
     Active Substance: PACRITINIB
     Indication: Myelodysplastic syndrome
     Dosage: 200 MG, BID
     Route: 048
     Dates: start: 20230315
  2. XANAX [Suspect]
     Active Substance: ALPRAZOLAM

REACTIONS (4)
  - Drug interaction [Unknown]
  - Somnolence [Unknown]
  - Anxiety [None]
  - Off label use [Unknown]

NARRATIVE: CASE EVENT DATE: 20230413
